FAERS Safety Report 6203102-2 (Version None)
Quarter: 2009Q2

REPORT INFORMATION
  Report Type: 
  Country: None (occurrence: None)
  Receive Date: 20090527
  Receipt Date: 20090525
  Transmission Date: 20091009
  Serious: Yes (Other)
  Sender: FDA-Public Use
  Company Number: FR-JNJFOC-20090505745

PATIENT
  Age: 65 Year
  Sex: Male

DRUGS (3)
  1. CRAVIT [Suspect]
     Indication: VIRAL INFECTION
     Route: 048
  2. OMEPRAZOLE [Concomitant]
     Route: 065
  3. PARACETAMOL [Concomitant]
     Indication: VIRAL INFECTION
     Route: 048

REACTIONS (2)
  - ANURIA [None]
  - INTENTIONAL DRUG MISUSE [None]
